FAERS Safety Report 8431845-9 (Version None)
Quarter: 2012Q2

REPORT INFORMATION
  Report Type: 
  Country: None (occurrence: None)
  Receive Date: 20120607
  Receipt Date: 20120607
  Transmission Date: 20120825
  Serious: No
  Sender: FDA-Public Use
  Company Number: None

PATIENT
  Sex: Male

DRUGS (2)
  1. HYDROCODONE BITARTRATE AND ACETAMINOPHEN [Suspect]
     Indication: ARTHRITIS
     Dosage: 2.5 TO 3 TABLETS AT NIGHT PO
     Route: 048
     Dates: start: 20120315, end: 20120515
  2. HYDROCODONE BITARTRATE AND ACETAMINOPHEN [Suspect]
     Indication: ROTATOR CUFF SYNDROME
     Dosage: 2.5 TO 3 TABLETS AT NIGHT PO
     Route: 048
     Dates: start: 20120315, end: 20120515

REACTIONS (4)
  - DRUG INEFFECTIVE [None]
  - PRODUCT SUBSTITUTION ISSUE [None]
  - CONSTIPATION [None]
  - PRODUCT FRIABLE [None]
